FAERS Safety Report 20053481 (Version 4)
Quarter: 2022Q2

REPORT INFORMATION
  Report Type: Report from Study
  Country: AR (occurrence: AR)
  Receive Date: 20211110
  Receipt Date: 20220601
  Transmission Date: 20220721
  Serious: Yes (Hospitalization, Other)
  Sender: FDA-Public Use
  Company Number: AR-NOVARTISPH-NVSC2021AR254538

PATIENT
  Age: 52 Year
  Sex: Female

DRUGS (2)
  1. KISQALI [Suspect]
     Active Substance: RIBOCICLIB
     Indication: Breast cancer metastatic
     Dosage: 600 MG, QD
     Route: 048
     Dates: start: 20210914
  2. FULVESTRANT [Suspect]
     Active Substance: FULVESTRANT
     Indication: Breast cancer metastatic
     Dosage: 2.5 MG, QMO
     Route: 030
     Dates: start: 20210914

REACTIONS (9)
  - Cerebrovascular accident [Unknown]
  - Gait inability [Recovered/Resolved]
  - Aphasia [Unknown]
  - Hemiparesis [Unknown]
  - Cardiac failure [Unknown]
  - Paralysis [Unknown]
  - Thrombosis [Unknown]
  - Mobility decreased [Recovering/Resolving]
  - Gastric disorder [Unknown]

NARRATIVE: CASE EVENT DATE: 20211029
